FAERS Safety Report 16929824 (Version 1)
Quarter: 2019Q4

REPORT INFORMATION
  Report Type: Spontaneous
  Country: US (occurrence: US)
  Receive Date: 20191017
  Receipt Date: 20191017
  Transmission Date: 20200122
  Serious: No
  Sender: FDA-Public Use
  Company Number: US-TEVA-2019-US-1122845

PATIENT
  Age: 71 Year
  Sex: Female

DRUGS (1)
  1. LIDOCAINE HCL 2% ACTAVIS [Suspect]
     Active Substance: LIDOCAINE HYDROCHLORIDE
     Indication: VULVITIS
     Dates: start: 1996

REACTIONS (2)
  - Drug ineffective [Unknown]
  - Expired product administered [Unknown]
